FAERS Safety Report 4311016-8 (Version None)
Quarter: 2004Q1

REPORT INFORMATION
  Report Type: 
  Country: None (occurrence: None)
  Receive Date: 20040302
  Receipt Date: 20040302
  Transmission Date: 20041129
  Serious: No
  Sender: FDA-Public Use
  Company Number: None

PATIENT
  Sex: Female

DRUGS (4)
  1. LINEZOLID 600 MG [Suspect]
     Indication: OSTEOMYELITIS
     Dosage: 600 MG BID ORAL
     Route: 048
     Dates: start: 20040115, end: 20040211
  2. LEVAQUIN [Concomitant]
  3. DIAZEPAM [Concomitant]
  4. AMBIEN [Concomitant]

REACTIONS (1)
  - PANCYTOPENIA [None]
